FAERS Safety Report 10243931 (Version 2)
Quarter: 2014Q3

REPORT INFORMATION
  Report Type: Spontaneous
  Country: US (occurrence: US)
  Receive Date: 20140618
  Receipt Date: 20140725
  Transmission Date: 20150326
  Serious: Yes (Death)
  Sender: FDA-Public Use
  Company Number: CHPA2014US008240

PATIENT
  Age: 57 Year
  Sex: Male

DRUGS (1)
  1. ASCRIPTIN REGULAR STRENGTH BUFFERED ASPIRIN [Suspect]
     Active Substance: ASPIRIN
     Indication: RHEUMATOID ARTHRITIS
     Route: 048

REACTIONS (5)
  - Arthralgia [Unknown]
  - Disease recurrence [Unknown]
  - Cardiac disorder [Fatal]
  - Peripheral swelling [Unknown]
  - Personality change [Unknown]
